FAERS Safety Report 25755412 (Version 1)
Quarter: 2025Q3

REPORT INFORMATION
  Report Type: Spontaneous
  Country: US (occurrence: US)
  Receive Date: 20250903
  Receipt Date: 20250903
  Transmission Date: 20251020
  Serious: Yes (Hospitalization)
  Sender: GALDERMA
  Company Number: US-GALDERMA-US2025016217

PATIENT

DRUGS (2)
  1. NEMLUVIO [Suspect]
     Active Substance: NEMOLIZUMAB-ILTO
     Indication: Neurodermatitis
     Route: 058
     Dates: start: 202506, end: 202506
  2. NEMLUVIO [Suspect]
     Active Substance: NEMOLIZUMAB-ILTO
     Route: 058
     Dates: start: 202507, end: 202507

REACTIONS (9)
  - Generalised oedema [Unknown]
  - Oedema peripheral [Recovering/Resolving]
  - Mobility decreased [Unknown]
  - Malaise [Unknown]
  - Diarrhoea [Unknown]
  - Vomiting [Unknown]
  - Polyp [Unknown]
  - Vein disorder [Unknown]
  - Product dose omission issue [Recovered/Resolved]

NARRATIVE: CASE EVENT DATE: 20250101
